FAERS Safety Report 6087236-1 (Version None)
Quarter: 2009Q1

REPORT INFORMATION
  Report Type: 
  Country: None (occurrence: None)
  Receive Date: 20090223
  Receipt Date: 20090109
  Transmission Date: 20090719
  Serious: Yes (Hospitalization)
  Sender: FDA-Public Use
  Company Number: US-CELGENEUS-AZAUS200500428

PATIENT
  Sex: Male
  Weight: 95.34 kg

DRUGS (9)
  1. AZACITIDINE [Suspect]
     Route: 058
     Dates: start: 20050906, end: 20050912
  2. GEMTUZUMAB OZOGAMICIN [Suspect]
     Route: 051
     Dates: start: 20050913, end: 20050913
  3. HYDROXYUREA [Suspect]
     Route: 048
  4. ACETAMINOPHEN [Concomitant]
     Indication: DRUG USE FOR UNKNOWN INDICATION
     Route: 065
     Dates: start: 20050925
  5. ACETAMINOPHEN [Concomitant]
     Indication: PREMEDICATION
  6. LEVOTHYROXINE SODIUM [Concomitant]
     Indication: DRUG USE FOR UNKNOWN INDICATION
     Route: 048
     Dates: start: 20050925
  7. DOCUSATE SODIUM [Concomitant]
     Indication: DRUG USE FOR UNKNOWN INDICATION
     Route: 048
     Dates: start: 20050925
  8. DIPHENHYDRAMINE HCL [Concomitant]
     Indication: PREMEDICATION
     Route: 065
  9. CORTICOSTEROIDS [Concomitant]
     Indication: PREMEDICATION
     Route: 065

REACTIONS (1)
  - CAECITIS [None]
